FAERS Safety Report 20936759 (Version 1)
Quarter: 2022Q2

REPORT INFORMATION
  Report Type: Spontaneous
  Country: IT (occurrence: IT)
  Receive Date: 20220609
  Receipt Date: 20220609
  Transmission Date: 20220720
  Serious: Yes (Other)
  Sender: FDA-Public Use
  Company Number: IT-TEVA-2022-IT-2043365

PATIENT
  Age: 61 Year
  Sex: Male

DRUGS (10)
  1. RASAGILINE [Suspect]
     Active Substance: RASAGILINE
     Indication: Parkinson^s disease
     Dosage: 1 MILLIGRAM DAILY;
     Route: 065
  2. PRAMIPEXOLE [Concomitant]
     Active Substance: PRAMIPEXOLE
     Indication: Parkinson^s disease
     Route: 065
  3. CARBIDOPA\LEVODOPA [Concomitant]
     Active Substance: CARBIDOPA\LEVODOPA
     Indication: Parkinson^s disease
     Dosage: GRADUALLY INTRODUCED UNTIL THE DOSE OF 100/25 MG FOR THREE TIMES PER DAY WAS REACHED
     Route: 065
  4. CARBIDOPA\LEVODOPA [Concomitant]
     Active Substance: CARBIDOPA\LEVODOPA
     Dosage: PROGRESSIVELY INCREASED OVER THE NEXT TWO YEARS TO 100/25 MG FIVE TIMES PER DAY.
     Route: 065
  5. CARBIDOPA\LEVODOPA [Concomitant]
     Active Substance: CARBIDOPA\LEVODOPA
     Dosage: PROGRESSIVELY INCREASED TO 100/25 MG NINE TIMES PER DAY
     Route: 065
  6. Melevodopa hydrochloride/carbidopa [Concomitant]
     Indication: Parkinson^s disease
     Route: 065
  7. CLONAZEPAM [Concomitant]
     Active Substance: CLONAZEPAM
     Indication: Rapid eye movement sleep behaviour disorder
     Route: 065
  8. CLONAZEPAM [Concomitant]
     Active Substance: CLONAZEPAM
     Indication: Insomnia
  9. TRAZODONE [Concomitant]
     Active Substance: TRAZODONE HYDROCHLORIDE
     Indication: Rapid eye movement sleep behaviour disorder
     Route: 065
  10. TRAZODONE [Concomitant]
     Active Substance: TRAZODONE HYDROCHLORIDE
     Indication: Insomnia

REACTIONS (1)
  - Drug withdrawal syndrome [Recovering/Resolving]
